FAERS Safety Report 10263873 (Version 1)
Quarter: 2014Q2

REPORT INFORMATION
  Report Type: Spontaneous
  Country: CH (occurrence: CH)
  Receive Date: 20140627
  Receipt Date: 20140627
  Transmission Date: 20141212
  Serious: Yes (Hospitalization)
  Sender: FDA-Public Use
  Company Number: CH-ROCHE-1425318

PATIENT
  Age: 63 Year
  Sex: Male

DRUGS (7)
  1. CELLCEPT [Suspect]
     Indication: RENAL TRANSPLANT
     Route: 048
     Dates: start: 201308
  2. PROGRAF [Suspect]
     Indication: RENAL TRANSPLANT
     Route: 048
     Dates: start: 201308
  3. PREDNISONE [Suspect]
     Indication: RENAL TRANSPLANT
     Route: 048
  4. LYRICA [Suspect]
     Indication: PRODUCT USED FOR UNKNOWN INDICATION
     Route: 048
     Dates: start: 201308
  5. AMLODIPIN [Suspect]
     Indication: HYPERTENSIVE HEART DISEASE
     Route: 048
  6. PANTOZOL (SWITZERLAND) [Concomitant]
     Route: 065
  7. CALCIMAGON-D3 [Concomitant]
     Route: 065

REACTIONS (2)
  - Diabetes mellitus [Not Recovered/Not Resolved]
  - Burning feet syndrome [Not Recovered/Not Resolved]
